FAERS Safety Report 18042191 (Version 1)
Quarter: 2020Q3

REPORT INFORMATION
  Report Type: Spontaneous
  Country: US (occurrence: US)
  Receive Date: 20200720
  Receipt Date: 20200720
  Transmission Date: 20201103
  Serious: No
  Sender: FDA-Public Use
  Company Number: US-SUN PHARMACEUTICAL INDUSTRIES LTD-2019R1-228278

PATIENT

DRUGS (1)
  1. AZELASTINE. [Suspect]
     Active Substance: AZELASTINE HYDROCHLORIDE
     Indication: PRODUCT USED FOR UNKNOWN INDICATION
     Dosage: UNK
     Route: 065
     Dates: start: 201911

REACTIONS (3)
  - Rhinalgia [Unknown]
  - Dysgeusia [Unknown]
  - Dyspepsia [Unknown]

NARRATIVE: CASE EVENT DATE: 201911
